FAERS Safety Report 4919751-5 (Version None)
Quarter: 2006Q1

REPORT INFORMATION
  Report Type: 
  Country: None (occurrence: None)
  Receive Date: 20060223
  Receipt Date: 20041117
  Transmission Date: 20060701
  Serious: Yes (Hospitalization)
  Sender: FDA-Public Use
  Company Number: 2004-11-0299

PATIENT
  Age: 28 Year
  Sex: Male

DRUGS (2)
  1. BUPRENORPHINE HCL [Suspect]
     Indication: DRUG USE FOR UNKNOWN INDICATION
     Dosage: DOSAGE UNKNOWN
     Route: 042
     Dates: end: 19980915
  2. COCAINE [Suspect]
     Indication: DRUG USE FOR UNKNOWN INDICATION
     Dosage: DOSAGE UNKNOWN
     Route: 065

REACTIONS (5)
  - ENDOCARDITIS ENTEROCOCCAL [None]
  - ENDOCARDITIS STAPHYLOCOCCAL [None]
  - HEPATITIS C [None]
  - INTENTIONAL DRUG MISUSE [None]
  - MITRAL VALVE INCOMPETENCE [None]
